FAERS Safety Report 22384519 (Version 1)
Quarter: 2023Q2

REPORT INFORMATION
  Report Type: Spontaneous
  Country: US (occurrence: US)
  Receive Date: 20230530
  Receipt Date: 20230530
  Transmission Date: 20230722
  Serious: No
  Sender: FDA-Public Use
  Company Number: US-PERRIGO-23US003634

PATIENT
  Age: 69 Year
  Sex: Male
  Weight: 90.703 kg

DRUGS (6)
  1. MINOXIDIL [Suspect]
     Active Substance: MINOXIDIL
     Indication: Alopecia
     Dosage: 1 CAPFUL, BID
     Route: 061
     Dates: start: 20230302, end: 20230306
  2. MINOXIDIL [Suspect]
     Active Substance: MINOXIDIL
     Dosage: 1 CAPFUL, BID
     Route: 061
     Dates: start: 20230102, end: 20230216
  3. MINOXIDIL [Suspect]
     Active Substance: MINOXIDIL
     Dosage: 1 CAPFUL, BID
     Route: 061
     Dates: start: 20220424, end: 20230101
  4. LISINOPRIL [Concomitant]
     Active Substance: LISINOPRIL
     Indication: Hypertension
     Dosage: UNK
     Route: 065
     Dates: start: 2008
  5. AMLODIPINE [Concomitant]
     Active Substance: AMLODIPINE BESYLATE
     Indication: Hypertension
     Dosage: UNK
     Route: 065
     Dates: start: 2008
  6. ATORVASTATIN [Concomitant]
     Active Substance: ATORVASTATIN
     Indication: Blood cholesterol increased
     Dosage: UNK
     Route: 065
     Dates: start: 2020

REACTIONS (5)
  - Application site inflammation [Recovered/Resolved]
  - Application site perspiration [Recovered/Resolved]
  - Application site erythema [Recovered/Resolved]
  - Application site pain [Recovered/Resolved]
  - Incorrect dose administered [Recovered/Resolved]

NARRATIVE: CASE EVENT DATE: 20220424
